FAERS Safety Report 8307601-9 (Version None)
Quarter: 2012Q2

REPORT INFORMATION
  Report Type: 
  Country: None (occurrence: None)
  Receive Date: 20120424
  Receipt Date: 20120416
  Transmission Date: 20120825
  Serious: Yes (Death, Life-Threatening, Other)
  Sender: FDA-Public Use
  Company Number: JP-CELGENEUS-087-50794-12031077

PATIENT
  Sex: Female
  Weight: 46 kg

DRUGS (10)
  1. VFEND [Concomitant]
     Route: 065
     Dates: start: 20110725, end: 20110908
  2. ZOSYN [Concomitant]
     Route: 065
     Dates: start: 20110714, end: 20110728
  3. KAKODIN [Concomitant]
     Route: 065
     Dates: start: 20110908, end: 20110909
  4. MEROPENEM [Concomitant]
     Route: 065
     Dates: start: 20110802, end: 20110814
  5. OMEGACIN [Concomitant]
     Route: 065
     Dates: start: 20110815, end: 20110828
  6. ALBUMIN (HUMAN) [Concomitant]
     Route: 065
     Dates: start: 20110808, end: 20110810
  7. GARENOXACIN MESYLATE [Concomitant]
     Route: 065
     Dates: start: 20110620, end: 20110724
  8. VIDAZA [Suspect]
     Dosage: 75 MILLIGRAM/SQ. METER
     Route: 058
     Dates: start: 20110620, end: 20110626
  9. ALBUMIN (HUMAN) [Concomitant]
     Route: 065
     Dates: start: 20110830, end: 20110901
  10. DIFLUCAN [Concomitant]
     Route: 065
     Dates: end: 20110725

REACTIONS (5)
  - PNEUMONIA [None]
  - OEDEMA [None]
  - WHITE BLOOD CELL COUNT DECREASED [None]
  - SEPSIS [None]
  - ILEUS [None]
